FAERS Safety Report 5080961-0 (Version None)
Quarter: 2006Q3

REPORT INFORMATION
  Report Type: 
  Country: None (occurrence: None)
  Receive Date: 20060810
  Receipt Date: 20060726
  Transmission Date: 20061208
  Serious: Yes (Hospitalization)
  Sender: FDA-Public Use
  Company Number: PAR_0719_2006

PATIENT
  Age: 31 Year
  Sex: Male

DRUGS (3)
  1. IBUPROFEN [Suspect]
     Dosage: DF PO
     Route: 048
  2. DICLOFENAC [Suspect]
     Dosage: DF
  3. PARACETAMOL-BASED ANALGESICS [Concomitant]

REACTIONS (7)
  - ABDOMINAL DISTENSION [None]
  - DEHYDRATION [None]
  - GLOMERULONEPHRITIS ACUTE [None]
  - HYPERTENSION [None]
  - NEPHRITIS INTERSTITIAL [None]
  - RENAL FAILURE ACUTE [None]
  - SELF-MEDICATION [None]
